FAERS Safety Report 23257542 (Version 1)
Quarter: 2023Q4

REPORT INFORMATION
  Report Type: Spontaneous
  Country: US (occurrence: US)
  Receive Date: 20231204
  Receipt Date: 20231204
  Transmission Date: 20240109
  Serious: No
  Sender: FDA-Public Use
  Company Number: US-ELI_LILLY_AND_COMPANY-US202312000790

PATIENT
  Sex: Female

DRUGS (6)
  1. HUMULIN R [Suspect]
     Active Substance: INSULIN HUMAN
     Indication: Type 2 diabetes mellitus
     Dosage: UNK UNK, UNKNOWN
     Route: 065
     Dates: start: 2015
  2. HUMULIN R [Suspect]
     Active Substance: INSULIN HUMAN
     Dosage: 118 U, DAILY
     Route: 065
     Dates: start: 2015
  3. HUMALOG [Suspect]
     Active Substance: INSULIN LISPRO
     Indication: Type 2 diabetes mellitus
     Dosage: UNK UNK, UNKNOWN
     Route: 065
  4. JARDIANCE [Suspect]
     Active Substance: EMPAGLIFLOZIN
     Indication: Type 2 diabetes mellitus
     Dosage: 25 MG, DAILY
     Route: 065
     Dates: start: 2018
  5. PREDNISONE [Suspect]
     Active Substance: PREDNISONE
     Indication: Type 2 diabetes mellitus
     Dosage: UNK UNK, UNKNOWN
     Route: 065
  6. LANTUS [Concomitant]
     Active Substance: INSULIN GLARGINE
     Indication: Type 2 diabetes mellitus

REACTIONS (9)
  - Dry mouth [Unknown]
  - Dry eye [Unknown]
  - Sinus disorder [Unknown]
  - Vision blurred [Unknown]
  - Fungal infection [Unknown]
  - Sjogren^s syndrome [Unknown]
  - Headache [Unknown]
  - Blood glucose increased [Unknown]
  - Drug ineffective [Unknown]
